FAERS Safety Report 4509023-5 (Version None)
Quarter: 2004Q4

REPORT INFORMATION
  Report Type: 
  Country: None (occurrence: None)
  Receive Date: 20041122
  Receipt Date: 20041122
  Transmission Date: 20050328
  Serious: Yes (Death)
  Sender: FDA-Public Use
  Company Number: None

PATIENT
  Age: 36 Year
  Sex: Male
  Weight: 127.0072 kg

DRUGS (2)
  1. VIOXX [Suspect]
     Indication: ARTHRALGIA
     Dosage: DAILY 25 MG
     Dates: start: 20041117
  2. VIOXX [Suspect]
     Indication: PAIN IN EXTREMITY
     Dosage: DAILY 25 MG
     Dates: start: 20041117

REACTIONS (4)
  - AMNESIA [None]
  - CEREBROVASCULAR ACCIDENT [None]
  - DYSARTHRIA [None]
  - MYOCARDIAL INFARCTION [None]
